FAERS Safety Report 14366291 (Version 1)
Quarter: 2018Q1

REPORT INFORMATION
  Report Type: Report from Study
  Country: CA (occurrence: CA)
  Receive Date: 20180109
  Receipt Date: 20180109
  Transmission Date: 20180509
  Serious: Yes (Other)
  Sender: FDA-Public Use
  Company Number: CA-ORION CORPORATION ORION PHARMA-TREX2016-0944

PATIENT
  Age: 54 Year
  Sex: Female

DRUGS (26)
  1. PREDNISONE. [Concomitant]
     Active Substance: PREDNISONE
     Route: 065
  2. NEXIUM [Concomitant]
     Active Substance: ESOMEPRAZOLE MAGNESIUM
     Route: 065
  3. RANITIDINE. [Concomitant]
     Active Substance: RANITIDINE
     Route: 065
  4. TYLENOL [Concomitant]
     Active Substance: ACETAMINOPHEN
     Route: 065
  5. LAXATIVES OILS [Concomitant]
     Route: 065
  6. OMEGA 3-6-9 [Concomitant]
     Active Substance: FISH OIL
     Route: 065
  7. ARAVA [Concomitant]
     Active Substance: LEFLUNOMIDE
     Route: 065
  8. ENBREL [Interacting]
     Active Substance: ETANERCEPT
     Route: 065
     Dates: start: 2015, end: 2015
  9. REACTINE PLUS SINUS [Concomitant]
     Route: 065
  10. MELOXICAM. [Concomitant]
     Active Substance: MELOXICAM
     Route: 065
  11. CENTRUM [Concomitant]
     Active Substance: VITAMINS
     Route: 065
  12. IRON [Concomitant]
     Active Substance: IRON
     Route: 065
  13. VIT B COMPLEX [Concomitant]
     Route: 065
  14. METHOTREXATE (TRADE NAME UNKNOWN) [Suspect]
     Active Substance: METHOTREXATE
     Route: 065
  15. VITAMIN D [Concomitant]
     Active Substance: CHOLECALCIFEROL
     Route: 065
  16. CODEINE [Concomitant]
     Active Substance: CODEINE
     Route: 065
  17. CRESTOR [Concomitant]
     Active Substance: ROSUVASTATIN CALCIUM
     Route: 065
  18. ENBREL [Interacting]
     Active Substance: ETANERCEPT
     Route: 065
     Dates: start: 2015, end: 2016
  19. CALCIUM [Concomitant]
     Active Substance: CALCIUM
     Route: 065
  20. FORTEO [Concomitant]
     Active Substance: TERIPARATIDE
     Route: 065
  21. GAVISCON [Concomitant]
     Active Substance: ALUMINUM HYDROXIDE\MAGNESIUM CARBONATE
     Route: 065
  22. FOLIC ACID. [Concomitant]
     Active Substance: FOLIC ACID
     Route: 065
  23. FOSAVANCE [Concomitant]
     Active Substance: ALENDRONATE SODIUM\CHOLECALCIFEROL
     Route: 065
  24. HUMIRA [Concomitant]
     Active Substance: ADALIMUMAB
     Route: 065
  25. ENBREL [Interacting]
     Active Substance: ETANERCEPT
     Indication: RHEUMATOID ARTHRITIS
     Route: 065
     Dates: start: 20011121, end: 2015
  26. ORENCIA [Concomitant]
     Active Substance: ABATACEPT
     Route: 065

REACTIONS (10)
  - Sinusitis bacterial [Not Recovered/Not Resolved]
  - Drug interaction [Unknown]
  - Rheumatoid arthritis [Unknown]
  - Bone erosion [Unknown]
  - Oral disorder [Unknown]
  - Bursitis [Unknown]
  - Aphthous ulcer [Unknown]
  - Pneumonia [Unknown]
  - Staphylococcal infection [Unknown]
  - Nasal septum perforation [Unknown]

NARRATIVE: CASE EVENT DATE: 201201
